FAERS Safety Report 12173712 (Version 1)
Quarter: 2016Q1

REPORT INFORMATION
  Report Type: Report from Study
  Country: CA (occurrence: CA)
  Receive Date: 20160314
  Receipt Date: 20160314
  Transmission Date: 20160526
  Serious: Yes (Other)
  Sender: FDA-Public Use
  Company Number: CA-BEH-2016060043

PATIENT
  Sex: Female

DRUGS (2)
  1. HIZENTRA [Suspect]
     Active Substance: HUMAN IMMUNOGLOBULIN G
     Indication: SECONDARY IMMUNODEFICIENCY
     Dosage: PUSH METHOD
     Route: 058
     Dates: start: 20160129
  2. HIZENTRA [Suspect]
     Active Substance: HUMAN IMMUNOGLOBULIN G
     Indication: PLASMA CELL MYELOMA
     Dosage: PUSH METHOD
     Route: 058
     Dates: start: 20160129

REACTIONS (3)
  - Plasma cell myeloma [Unknown]
  - Restless legs syndrome [Not Recovered/Not Resolved]
  - Blood pressure increased [Unknown]
